FAERS Safety Report 8484325-9 (Version None)
Quarter: 2012Q3

REPORT INFORMATION
  Report Type: 
  Country: None (occurrence: None)
  Receive Date: 20120703
  Receipt Date: 20120626
  Transmission Date: 20120928
  Serious: Yes (Hospitalization)
  Sender: FDA-Public Use
  Company Number: PHFR2012GB003697

PATIENT
  Sex: Male

DRUGS (2)
  1. CLOZARIL [Suspect]
     Indication: SCHIZOPHRENIA
     Dosage: 425 MG, SINGLE AT NIGHT
     Route: 048
     Dates: start: 20090706
  2. CLOZARIL [Suspect]
     Dosage: 3 X 425 MG
     Dates: start: 20120625

REACTIONS (3)
  - OVERDOSE [None]
  - PUPILLARY REFLEX IMPAIRED [None]
  - SOMNOLENCE [None]
